FAERS Safety Report 8946925 (Version 1)
Quarter: 2012Q4

REPORT INFORMATION
  Report Type: 
  Country: AR (occurrence: AR)
  Receive Date: 20121205
  Receipt Date: 20121205
  Transmission Date: 20130627
  Serious: Yes (Hospitalization)
  Sender: FDA-Public Use
  Company Number: PHHY2012AR111425

PATIENT
  Age: 67 Year
  Sex: Male

DRUGS (1)
  1. EXELON PATCH [Suspect]
     Indication: DEMENTIA ALZHEIMER^S TYPE
     Dosage: 4.6 mg, daily (5 cm daily)
     Route: 062
     Dates: start: 201209, end: 20121011

REACTIONS (2)
  - Anal infection [Recovering/Resolving]
  - Drug ineffective [Unknown]
